FAERS Safety Report 4827077-3 (Version None)
Quarter: 2005Q4

REPORT INFORMATION
  Report Type: 
  Country: None (occurrence: None)
  Receive Date: 20051014
  Receipt Date: 20050627
  Transmission Date: 20060501
  Serious: No
  Sender: FDA-Public Use
  Company Number: 2005SP001612

PATIENT
  Age: 76 Year
  Sex: Female
  Weight: 72.5755 kg

DRUGS (2)
  1. LUNESTA [Suspect]
     Dosage: 2 MG; 1X; ORAL; SEE IMAGE
     Route: 048
     Dates: start: 20050101, end: 20050101
  2. LUNESTA [Suspect]
     Dosage: 2 MG; 1X; ORAL; SEE IMAGE
     Route: 048
     Dates: start: 20050501, end: 20050501

REACTIONS (2)
  - DRUG INEFFECTIVE [None]
  - INSOMNIA [None]
